FAERS Safety Report 4339531-1 (Version None)
Quarter: 2004Q2

REPORT INFORMATION
  Report Type: 
  Country: None (occurrence: None)
  Receive Date: 20040415
  Receipt Date: 20040405
  Transmission Date: 20050107
  Serious: Yes (Other)
  Sender: FDA-Public Use
  Company Number: US-BRISTOL-MYERS SQUIBB COMPANY-12557211

PATIENT
  Age: 35 Year
  Sex: Female

DRUGS (6)
  1. SERZONE [Suspect]
     Route: 048
     Dates: start: 20000930, end: 20020201
  2. METOPROLOL [Concomitant]
  3. ENALAPRIL MALEATE [Concomitant]
  4. NORVASC [Concomitant]
  5. DOXEPIN HCL [Concomitant]
  6. VERAPAMIL [Concomitant]

REACTIONS (6)
  - DIZZINESS [None]
  - LIVER FUNCTION TEST ABNORMAL [None]
  - MALAISE [None]
  - OEDEMA PERIPHERAL [None]
  - PREGNANCY [None]
  - PREMATURE BABY [None]
